FAERS Safety Report 24304214 (Version 4)
Quarter: 2024Q4

REPORT INFORMATION
  Report Type: Spontaneous
  Country: US (occurrence: US)
  Receive Date: 20240910
  Receipt Date: 20241128
  Transmission Date: 20250115
  Serious: No
  Sender: BRISTOL-MYERS SQUIBB COMPANY
  Company Number: US-BRISTOL-MYERS SQUIBB COMPANY-2024-143765

PATIENT
  Age: 81 Year
  Sex: Female
  Weight: 46.72 kg

DRUGS (3)
  1. REVLIMID [Suspect]
     Active Substance: LENALIDOMIDE
     Indication: Plasma cell myeloma
     Dosage: FREQUENCY-21
     Route: 048
     Dates: start: 20240801
  2. REVLIMID [Suspect]
     Active Substance: LENALIDOMIDE
     Route: 048
     Dates: start: 20240808
  3. VELCADE [Concomitant]
     Active Substance: BORTEZOMIB
     Indication: Product used for unknown indication

REACTIONS (6)
  - Cognitive disorder [Not Recovered/Not Resolved]
  - Brain fog [Unknown]
  - Confusional state [Unknown]
  - Constipation [Unknown]
  - Nasopharyngitis [Recovering/Resolving]
  - Sinus disorder [Unknown]
